FAERS Safety Report 10004855 (Version 2)
Quarter: 2014Q2

REPORT INFORMATION
  Report Type: Spontaneous
  Country: US (occurrence: US)
  Receive Date: 20140312
  Receipt Date: 20140401
  Transmission Date: 20141212
  Serious: No
  Sender: FDA-Public Use
  Company Number: US-PFIZER INC-2014070470

PATIENT
  Age: 65 Year
  Sex: Female
  Weight: 57.14 kg

DRUGS (4)
  1. CELEBREX [Suspect]
     Indication: ARTHRITIS
     Dosage: 50 MG, 2X/DAY
     Route: 048
     Dates: start: 201401, end: 2014
  2. TOPROL XL [Concomitant]
     Dosage: 25 MG, UNK
  3. PROVENTIL [Concomitant]
     Dosage: 95 UG, AS NEEDED (EVERY SIX HOURS AS NEEDED)
  4. ADVAIR DISKUS [Concomitant]
     Dosage: 1 DF, 2X/DAY
     Route: 045
     Dates: start: 20140204

REACTIONS (2)
  - Bone pain [Unknown]
  - Feeling abnormal [Unknown]
